FAERS Safety Report 18496727 (Version 1)
Quarter: 2020Q4

REPORT INFORMATION
  Report Type: Report from Study
  Country: US (occurrence: US)
  Receive Date: 20201112
  Receipt Date: 20201112
  Transmission Date: 20210114
  Serious: Yes (Hospitalization, Other)
  Sender: FDA-Public Use
  Company Number: US-BAYER-2020-236631

PATIENT
  Age: 81 Year
  Sex: Male

DRUGS (1)
  1. NUBEQA [Suspect]
     Active Substance: DAROLUTAMIDE
     Indication: HORMONE-REFRACTORY PROSTATE CANCER
     Dosage: 600 MG, BID WITH FOOD
     Route: 048
     Dates: start: 20201021

REACTIONS (12)
  - Syncope [Unknown]
  - Hospitalisation [Unknown]
  - Diplopia [Not Recovered/Not Resolved]
  - Anaemia [Not Recovered/Not Resolved]
  - White blood cell count decreased [Not Recovered/Not Resolved]
  - Dehydration [Unknown]
  - Fatigue [Not Recovered/Not Resolved]
  - Decreased appetite [Not Recovered/Not Resolved]
  - Vomiting [Unknown]
  - Vomiting [Not Recovered/Not Resolved]
  - Platelet count decreased [None]
  - Loss of consciousness [Unknown]

NARRATIVE: CASE EVENT DATE: 202010
